FAERS Safety Report 13093503 (Version 1)
Quarter: 2017Q1

REPORT INFORMATION
  Report Type: Other
  Country: IT (occurrence: IT)
  Receive Date: 20170106
  Receipt Date: 20170106
  Transmission Date: 20170428
  Serious: Yes (Other)
  Sender: FDA-Public Use
  Company Number: IT-CELLTRION INC.-2016IT014271

PATIENT

DRUGS (8)
  1. ESOMEPRAZOLE [Concomitant]
     Active Substance: ESOMEPRAZOLE
     Indication: PROPHYLAXIS
     Route: 048
  2. ARAVA [Concomitant]
     Active Substance: LEFLUNOMIDE
     Indication: RHEUMATOID ARTHRITIS
     Dosage: 20 MG FILM COATED TABLETS BLISTER 30 TABLETS ORAL USE
     Route: 048
  3. PLAVIX [Concomitant]
     Active Substance: CLOPIDOGREL BISULFATE
     Indication: PROPHYLAXIS
     Dosage: PLAVIX 75, 28 FILM COATED TABLETS 75 MG IN BLISTER
     Route: 048
  4. TRIATEC                            /00885601/ [Concomitant]
     Active Substance: RAMIPRIL
     Indication: HYPERTENSION
     Dosage: TRIATEC 2,5 MG TABLETS 28 DIVISIBLE TABLETS
     Route: 048
  5. LIBRADIN                           /01301602/ [Concomitant]
     Active Substance: BARNIDIPINE HYDROCHLORIDE
     Indication: HYPERTENSION
     Dosage: 1 U, UNK, LIBRADIN 28 MODIFIED RELEASE CAPSULES IN BLISTER PVC/AL OF 20 MG
     Route: 048
  6. REMSIMA [Suspect]
     Active Substance: INFLIXIMAB
     Indication: RHEUMATOID ARTHRITIS
     Dosage: 2 U, CYCLIC
     Route: 042
     Dates: start: 20150701, end: 20150701
  7. REMSIMA [Suspect]
     Active Substance: INFLIXIMAB
     Dosage: 2 U, CYCLIC
     Route: 042
     Dates: start: 20151009, end: 20151009
  8. TRAVATAN [Concomitant]
     Active Substance: TRAVOPROST
     Indication: GLAUCOMA
     Dosage: TRAVATAN 40 MCG/ML EYE DROPS SOLUTION 1 FLASK 2,5 ML, ORAL DROPS, SOLUTION
     Route: 047

REACTIONS (2)
  - Encephalopathy [Recovering/Resolving]
  - Ischaemic stroke [Recovering/Resolving]

NARRATIVE: CASE EVENT DATE: 20151101
